FAERS Safety Report 11107263 (Version 2)
Quarter: 2015Q2

REPORT INFORMATION
  Report Type: Report from Study
  Country: DE (occurrence: DE)
  Receive Date: 20150512
  Receipt Date: 20150526
  Transmission Date: 20150821
  Serious: Yes (Death, Other)
  Sender: FDA-Public Use
  Company Number: DE-GILEAD-2015-0152796

PATIENT
  Age: 38 Year
  Sex: Male
  Weight: 90 kg

DRUGS (1)
  1. LEDIPASVIR/SOFOSBUVIR [Suspect]
     Active Substance: LEDIPASVIR\SOFOSBUVIR
     Indication: CHRONIC HEPATITIS C
     Dosage: 1 DF, QD
     Route: 048
     Dates: start: 20150324, end: 20150507

REACTIONS (2)
  - Stress [Unknown]
  - Death [Fatal]

NARRATIVE: CASE EVENT DATE: 20150507
